FAERS Safety Report 5471305-0 (Version None)
Quarter: 2007Q3

REPORT INFORMATION
  Report Type: 
  Country: None (occurrence: None)
  Receive Date: 20070928
  Receipt Date: 20070918
  Transmission Date: 20080115
  Serious: Yes (Hospitalization, Other)
  Sender: FDA-Public Use
  Company Number: US-PFIZER INC-2007007954

PATIENT
  Sex: Female
  Weight: 79.2 kg

DRUGS (7)
  1. NEURONTIN [Suspect]
     Indication: NERVE INJURY
  2. NEURONTIN [Suspect]
     Indication: PARAESTHESIA
  3. NEURONTIN [Suspect]
     Indication: NEUROPATHY
  4. LYRICA [Suspect]
     Indication: NERVE INJURY
     Route: 048
     Dates: start: 20060701, end: 20070101
  5. LYRICA [Suspect]
     Indication: NEURALGIA
  6. XANAX [Concomitant]
     Indication: ANXIETY
  7. XANAX [Concomitant]
     Indication: SLEEP DISORDER

REACTIONS (13)
  - ALOPECIA [None]
  - DEHYDRATION [None]
  - DRUG INEFFECTIVE [None]
  - FEELING ABNORMAL [None]
  - GASTROENTERITIS [None]
  - LOSS OF CONSCIOUSNESS [None]
  - MALAISE [None]
  - PAIN [None]
  - PARAESTHESIA [None]
  - SOMNOLENCE [None]
  - THINKING ABNORMAL [None]
  - URTICARIA [None]
  - VISUAL DISTURBANCE [None]
